FAERS Safety Report 17225004 (Version 1)
Quarter: 2020Q1

REPORT INFORMATION
  Report Type: Spontaneous
  Country: GB (occurrence: GB)
  Receive Date: 20200102
  Receipt Date: 20200102
  Transmission Date: 20200409
  Serious: Yes (Other)
  Sender: FDA-Public Use
  Company Number: GB-TEVA-2019-GB-1160190

PATIENT
  Age: 22 Year
  Sex: Female
  Weight: 82.55 kg

DRUGS (2)
  1. DESOGESTREL [Concomitant]
     Active Substance: DESOGESTREL
  2. NAPROXEN. [Suspect]
     Active Substance: NAPROXEN
     Indication: JOINT SWELLING
     Dosage: 500 MG
     Route: 048
     Dates: start: 20191114, end: 20191126

REACTIONS (2)
  - Gastrooesophageal reflux disease [Unknown]
  - Abdominal pain upper [Unknown]

NARRATIVE: CASE EVENT DATE: 20191125
